FAERS Safety Report 9128825 (Version 1)
Quarter: 2013Q1

REPORT INFORMATION
  Report Type: Spontaneous
  Country: US (occurrence: US)
  Receive Date: 20130228
  Receipt Date: 20130228
  Transmission Date: 20140127
  Serious: Yes (Other)
  Sender: FDA-Public Use
  Company Number: US-AMGEN-USASP2013013298

PATIENT
  Age: 0 Year
  Sex: 0
  Weight: 10.43 kg

DRUGS (1)
  1. ENBREL [Suspect]
     Dosage: UNK
     Route: 064

REACTIONS (5)
  - Jaundice [Recovered/Resolved]
  - Cardiac murmur [Recovered/Resolved]
  - Premature baby [Recovered/Resolved]
  - Low birth weight baby [Recovered/Resolved]
  - Body mass index decreased [Not Recovered/Not Resolved]
